FAERS Safety Report 23544666 (Version 1)
Quarter: 2024Q1

REPORT INFORMATION
  Report Type: Spontaneous
  Country: US (occurrence: None)
  Receive Date: 20240219
  Receipt Date: 20240219
  Transmission Date: 20240410
  Serious: Yes (Hospitalization)
  Sender: FDA-Public Use
  Company Number: None

PATIENT
  Age: 57 Year
  Sex: Female

DRUGS (1)
  1. AJOVY [Suspect]
     Active Substance: FREMANEZUMAB-VFRM
     Indication: Migraine
     Dosage: FREQUENCY : MONTHLY;?
     Route: 011
     Dates: start: 202206

REACTIONS (4)
  - Therapeutic product effect incomplete [None]
  - Migraine [None]
  - Disease recurrence [None]
  - Extra dose administered [None]

NARRATIVE: CASE EVENT DATE: 20231201
